FAERS Safety Report 5196593-X (Version None)
Quarter: 2006Q4

REPORT INFORMATION
  Report Type: 
  Country: None (occurrence: None)
  Receive Date: 20061229
  Receipt Date: 20061229
  Transmission Date: 20070319
  Serious: Yes (Hospitalization)
  Sender: FDA-Public Use
  Company Number: None

PATIENT
  Age: 57 Year
  Sex: Male
  Weight: 122 kg

DRUGS (11)
  1. EXENATIDE [Suspect]
     Indication: DIABETES MELLITUS
     Dosage: 10 MCG BID SQ
     Route: 058
     Dates: start: 20061001, end: 20061111
  2. FAMOTIDINE [Concomitant]
  3. FENOFIBRATE [Concomitant]
  4. FENTANYL TRANSDERMAL SYSTEM [Concomitant]
  5. HEPARIN [Concomitant]
  6. INSULIN [Concomitant]
  7. MULTI-VITAMIN [Concomitant]
  8. PIPERACILLIN AND TAZOBACTAM [Concomitant]
  9. RAMIPRIL [Concomitant]
  10. SIMVASTATIN [Concomitant]
  11. OXAPROZIN [Concomitant]

REACTIONS (9)
  - COLITIS ISCHAEMIC [None]
  - COMPUTERISED TOMOGRAM ABNORMAL [None]
  - DIARRHOEA [None]
  - HYPOVOLAEMIA [None]
  - INCORRECT DOSE ADMINISTERED [None]
  - NAUSEA [None]
  - PNEUMATOSIS [None]
  - PORTAL VENOUS GAS [None]
  - VOMITING [None]
